FAERS Safety Report 5684288-5 (Version None)
Quarter: 2008Q1

REPORT INFORMATION
  Report Type: 
  Country: None (occurrence: None)
  Receive Date: 20080328
  Receipt Date: 20080328
  Transmission Date: 20080703
  Serious: Yes (Other)
  Sender: FDA-Public Use
  Company Number: A0718038A

PATIENT
  Age: 42 Year
  Sex: Female
  Weight: 74.5 kg

DRUGS (5)
  1. ALLI [Suspect]
     Indication: WEIGHT LOSS DIET
     Route: 048
     Dates: start: 20070601, end: 20080327
  2. RISPERDAL [Concomitant]
     Indication: BIPOLAR DISORDER
     Route: 048
  3. ZYRTEC [Concomitant]
     Route: 048
  4. SUDAFED 12 HOUR [Concomitant]
     Route: 048
  5. BIRTH CONTROL [Concomitant]
     Route: 048

REACTIONS (6)
  - ABDOMINAL PAIN LOWER [None]
  - ANAL HAEMORRHAGE [None]
  - ASTHENIA [None]
  - DIARRHOEA [None]
  - RECTAL HAEMORRHAGE [None]
  - WEIGHT INCREASED [None]
